APPROVED DRUG PRODUCT: TOPICORT
Active Ingredient: DESOXIMETASONE
Strength: 0.25% **Federal Register determination that product was not discontinued or withdrawn for safety or effectiveness reasons**
Dosage Form/Route: OINTMENT;TOPICAL
Application: N018763 | Product #001
Applicant: TARO PHARMACEUTICAL INDUSTRIES LTD
Approved: Sep 30, 1983 | RLD: Yes | RS: No | Type: DISCN